FAERS Safety Report 5340913-X (Version None)
Quarter: 2007Q2

REPORT INFORMATION
  Report Type: 
  Country: None (occurrence: None)
  Receive Date: 20070531
  Receipt Date: 20070522
  Transmission Date: 20071010
  Serious: Yes (Life-Threatening)
  Sender: FDA-Public Use
  Company Number: GB-MERCK-0704GBR00004

PATIENT
  Age: 56 Year
  Sex: Female

DRUGS (5)
  1. ZETIA [Suspect]
     Indication: BLOOD CHOLESTEROL INCREASED
     Route: 048
     Dates: start: 20070307, end: 20070301
  2. DICLOFENAC [Concomitant]
     Route: 065
     Dates: start: 20030101
  3. LISINOPRIL [Concomitant]
     Route: 065
     Dates: start: 20061201
  4. ATORVASTATIN CALCIUM [Concomitant]
     Route: 065
     Dates: start: 20060101, end: 20070301
  5. HORMONES (UNSPECIFIED) [Concomitant]
     Indication: HORMONE REPLACEMENT THERAPY
     Route: 065

REACTIONS (4)
  - AGGRESSION [None]
  - DEPRESSION [None]
  - FATIGUE [None]
  - SUICIDAL BEHAVIOUR [None]
